FAERS Safety Report 9862616 (Version 1)
Quarter: 2014Q1

REPORT INFORMATION
  Report Type: Spontaneous
  Country: CO (occurrence: CO)
  Receive Date: 20140203
  Receipt Date: 20140203
  Transmission Date: 20141002
  Serious: Yes (Other)
  Sender: FDA-Public Use
  Company Number: CO-PFIZER INC-2014028221

PATIENT
  Age: 45 Year
  Sex: Female

DRUGS (13)
  1. ENBREL MYCLIC [Suspect]
     Indication: RHEUMATOID ARTHRITIS
     Dosage: 50 MG, WEEKLY
     Route: 058
     Dates: start: 20120507
  2. HYDROCORTISONE SODIUM SUCCINATE [Suspect]
     Indication: DRY SKIN
     Dosage: UNK
  3. HYDROCORTISONE SODIUM SUCCINATE [Suspect]
     Indication: LIP DRY
  4. HYDROCORTISONE SODIUM SUCCINATE [Suspect]
     Indication: PRURITUS
  5. HYDROCORTISONE SODIUM SUCCINATE [Suspect]
     Indication: LIP PRURITUS
  6. BETAMETHASONE [Suspect]
     Indication: DRY SKIN
     Dosage: UNK
  7. BETAMETHASONE [Suspect]
     Indication: LIP DRY
  8. BETAMETHASONE [Suspect]
     Indication: PRURITUS
  9. BETAMETHASONE [Suspect]
     Indication: LIP PRURITUS
  10. ACICLOVIR [Suspect]
     Indication: DRY SKIN
     Dosage: UNK
  11. ACICLOVIR [Suspect]
     Indication: LIP DRY
  12. ACICLOVIR [Suspect]
     Indication: PRURITUS
  13. ACICLOVIR [Suspect]
     Indication: LIP PRURITUS

REACTIONS (9)
  - Eye ulcer [Not Recovered/Not Resolved]
  - Eye pruritus [Not Recovered/Not Resolved]
  - Dry skin [Not Recovered/Not Resolved]
  - Lip dry [Not Recovered/Not Resolved]
  - Pruritus [Not Recovered/Not Resolved]
  - Lip pruritus [Not Recovered/Not Resolved]
  - Pain of skin [Not Recovered/Not Resolved]
  - Lip pain [Not Recovered/Not Resolved]
  - Drug ineffective [Unknown]
